FAERS Safety Report 4555145-2 (Version None)
Quarter: 2005Q1

REPORT INFORMATION
  Report Type: 
  Country: None (occurrence: None)
  Receive Date: 20041228
  Receipt Date: 20040712
  Transmission Date: 20050727
  Serious: Yes (Hospitalization)
  Sender: FDA-Public Use
  Company Number: PHEH2004US06657

PATIENT
  Age: 80 Year
  Sex: Female

DRUGS (5)
  1. AREDIA [Suspect]
     Indication: METASTASES TO BONE
     Dosage: 90 MG, QMO
     Dates: start: 20030110, end: 20040520
  2. FASLODEX [Suspect]
     Indication: BREAST CANCER METASTATIC
     Dosage: 250 MG, QMO
     Dates: start: 20021120, end: 20040520
  3. HERCEPTIN [Suspect]
     Indication: BREAST CANCER METASTATIC
     Dosage: 435 MG  Q3 WEEKS, INTRAVENOUS
     Route: 042
     Dates: start: 20021120, end: 20040211
  4. SYNTHROID [Suspect]
  5. PROCRIT (ERYTHROPOIETIN) [Concomitant]

REACTIONS (1)
  - BONE PAIN [None]
